FAERS Safety Report 18259776 (Version 2)
Quarter: 2020Q4

REPORT INFORMATION
  Report Type: Report from Study
  Country: US (occurrence: US)
  Receive Date: 20200912
  Receipt Date: 20201014
  Transmission Date: 20210113
  Serious: Yes (Hospitalization, Disabling, Other)
  Sender: FDA-Public Use
  Company Number: NVSC2020US245135

PATIENT
  Sex: Female

DRUGS (1)
  1. PIQRAY [Suspect]
     Active Substance: ALPELISIB
     Indication: BREAST CANCER METASTATIC
     Dosage: 300 MG, QD (TREATMENT ON HOLD)
     Route: 048

REACTIONS (5)
  - Oxygen saturation decreased [Not Recovered/Not Resolved]
  - Unresponsive to stimuli [Unknown]
  - Hyperglycaemia [Recovering/Resolving]
  - Wrong technique in product usage process [Unknown]
  - Urinary tract infection [Recovering/Resolving]
